FAERS Safety Report 8296449-X (Version None)
Quarter: 2012Q2

REPORT INFORMATION
  Report Type: 
  Country: None (occurrence: None)
  Receive Date: 20120418
  Receipt Date: 20120417
  Transmission Date: 20120825
  Serious: Yes (Other)
  Sender: FDA-Public Use
  Company Number: US-PFIZER INC-2012090679

PATIENT
  Sex: Female
  Weight: 120.18 kg

DRUGS (15)
  1. LOSARTAN [Concomitant]
     Indication: HYPERTENSION
     Dosage: 100 MG, DAILY
  2. VITAMIN B COMPLEX CAP [Concomitant]
     Dosage: UNK, DAILY
  3. ACETYLSALICYLIC ACID [Concomitant]
     Dosage: 81 MG, DAILY
  4. LOVAZA [Concomitant]
     Dosage: 1200 MG, DAILY
  5. SYNTHROID [Concomitant]
     Indication: HYPOTHYROIDISM
     Dosage: 0.088 MG, DAILY
  6. MELOXICAM [Suspect]
     Indication: OSTEOARTHRITIS
     Dosage: UNK
     Dates: start: 20110101, end: 20111001
  7. ATENOLOL [Concomitant]
     Indication: HYPERTENSION
     Dosage: 50 MG, DAILY
  8. HYDROCHLOROTHIAZIDE [Concomitant]
     Indication: HYPERTENSION
     Dosage: 25 MG, DAILY
  9. CALCIUM WITH VITAMIN D [Concomitant]
     Dosage: 1200 MG /1000 MG, 2X/DAY
  10. CELEBREX [Suspect]
     Indication: OSTEOARTHRITIS
     Dosage: 200 MG, 2X/DAY
  11. CELEBREX [Suspect]
     Dosage: 200 MG, DAILY
  12. CELEBREX [Suspect]
     Dosage: UNK
     Dates: end: 20110101
  13. MULTI-VITAMINS [Concomitant]
     Indication: EYE DISORDER
     Dosage: UNK, DAILY
  14. GLUCOSAMINE SULFATE [Concomitant]
     Indication: ARTHROPATHY
     Dosage: 1000 MG, 2X/DAY
  15. IBUPROFEN [Suspect]
     Indication: OSTEOARTHRITIS
     Dosage: UNK

REACTIONS (9)
  - PAIN IN EXTREMITY [None]
  - RENAL IMPAIRMENT [None]
  - LIMB DISCOMFORT [None]
  - MUSCULOSKELETAL STIFFNESS [None]
  - MUSCULOSKELETAL DISCOMFORT [None]
  - MYALGIA [None]
  - BURSITIS [None]
  - PAIN [None]
  - BLOOD CHOLESTEROL INCREASED [None]
